FAERS Safety Report 18191677 (Version 1)
Quarter: 2020Q3

REPORT INFORMATION
  Report Type: Spontaneous
  Country: US (occurrence: US)
  Receive Date: 20200824
  Receipt Date: 20200824
  Transmission Date: 20201103
  Serious: No
  Sender: FDA-Public Use
  Company Number: None

PATIENT
  Age: 51 Year
  Sex: Female

DRUGS (1)
  1. BUPRENOPHINE AND NALOXONE SUBLINGUAL FILM ? [Suspect]
     Active Substance: BUPRENORPHINE HYDROCHLORIDE\NALOXONE HYDROCHLORIDE
     Dosage: ?          OTHER DOSE:8?2MG 2 FILMS;OTHER FREQUENCY:EVERY AM;?
     Route: 060

REACTIONS (1)
  - Oral mucosal blistering [None]

NARRATIVE: CASE EVENT DATE: 20200813
